FAERS Safety Report 16796115 (Version 1)
Quarter: 2019Q3

REPORT INFORMATION
  Report Type: Spontaneous
  Country: US (occurrence: US)
  Receive Date: 20190911
  Receipt Date: 20190911
  Transmission Date: 20191005
  Serious: No
  Sender: FDA-Public Use
  Company Number: US-BAYER-2019-156728

PATIENT
  Sex: Male
  Weight: 91 kg

DRUGS (4)
  1. AMITIZA [Concomitant]
     Active Substance: LUBIPROSTONE
     Dosage: UNK
  2. FLUVOXAMINE [Concomitant]
     Active Substance: FLUVOXAMINE
     Dosage: UNK
  3. MIRALAX [Suspect]
     Active Substance: POLYETHYLENE GLYCOL 3350
     Indication: GASTROINTESTINAL DISORDER
     Dosage: 17 G
     Route: 048
  4. DILANTIN [Concomitant]
     Active Substance: PHENYTOIN
     Dosage: UNK

REACTIONS (1)
  - Flatulence [Unknown]
